FAERS Safety Report 4948938-0 (Version None)
Quarter: 2006Q1

REPORT INFORMATION
  Report Type: 
  Country: None (occurrence: None)
  Receive Date: 20060316
  Receipt Date: 20060303
  Transmission Date: 20060701
  Serious: Yes (Other)
  Sender: FDA-Public Use
  Company Number: 2006-BP-02475RO

PATIENT
  Age: 54 Year
  Sex: Male

DRUGS (9)
  1. LITHIUM CARBONATE [Suspect]
     Dosage: 300 MG, QD (300 MG), PO; SEE IMAGE
     Route: 048
     Dates: end: 20050701
  2. LITHIUM CARBONATE [Suspect]
     Dosage: 300 MG, QD (300 MG), PO; SEE IMAGE
     Route: 048
     Dates: start: 20050701, end: 20050801
  3. LITHIUM CARBONATE [Suspect]
     Dosage: 300 MG, QD (300 MG), PO; SEE IMAGE
     Route: 048
     Dates: start: 20050801
  4. CLOZAPINE [Suspect]
     Indication: SCHIZOPHRENIA
     Dosage: 50 MG QD (25 MG), PO
     Route: 048
     Dates: start: 20041123
  5. CLOZAPINE [Suspect]
     Indication: SCHIZOPHRENIA
     Dosage: 50 MG QD (25 MG), PO
     Route: 048
     Dates: start: 20041123
  6. RISPERIDONE [Concomitant]
  7. BENZTROPINE MESYLATE [Concomitant]
  8. VALPROATE SODIUM [Concomitant]
  9. CLONAZEPAM [Concomitant]

REACTIONS (2)
  - GRANULOCYTOPENIA [None]
  - NEUTROPHIL COUNT DECREASED [None]
